FAERS Safety Report 10989830 (Version 5)
Quarter: 2020Q3

REPORT INFORMATION
  Report Type: Report from Study
  Country: CA (occurrence: CA)
  Receive Date: 20150406
  Receipt Date: 20200930
  Transmission Date: 20201102
  Serious: Yes (Other)
  Sender: FDA-Public Use
  Company Number: CA-JNJFOC-20150400917

PATIENT
  Age: 57 Year
  Sex: Male
  Weight: 88.5 kg

DRUGS (3)
  1. REMICADE [Suspect]
     Active Substance: INFLIXIMAB
     Dosage: 10MG/ML
     Route: 042
  2. REMICADE [Suspect]
     Active Substance: INFLIXIMAB
     Indication: COLITIS ULCERATIVE
     Route: 042
     Dates: start: 20140526
  3. REMICADE [Suspect]
     Active Substance: INFLIXIMAB
     Route: 042

REACTIONS (4)
  - Product use issue [Unknown]
  - Bladder neoplasm [Recovered/Resolved]
  - Off label use [Unknown]
  - Stent placement [Unknown]

NARRATIVE: CASE EVENT DATE: 20140526
